FAERS Safety Report 15296536 (Version 2)
Quarter: 2019Q3

REPORT INFORMATION
  Report Type: Spontaneous
  Country: FR (occurrence: FR)
  Receive Date: 20180820
  Receipt Date: 20190812
  Transmission Date: 20191004
  Serious: Yes (Life-Threatening)
  Sender: FDA-Public Use
  Company Number: FR-PFIZER INC-2018328674

PATIENT
  Age: 86 Year
  Sex: Male
  Weight: 70 kg

DRUGS (15)
  1. DAFLON /01026201/ [Concomitant]
     Active Substance: DIOSMIN\HESPERIDIN
     Dosage: 2 DF, UNK
     Route: 048
  2. PREVISCAN /00789001/ [Concomitant]
     Active Substance: FLUINDIONE
     Dosage: UNK (ACCORDING TO INR)
     Route: 048
  3. TAKADOL [Suspect]
     Active Substance: TRAMADOL
     Dosage: 1.5 DF, UNK
     Route: 048
  4. LEVOTHYROX [Concomitant]
     Active Substance: LEVOTHYROXINE
     Dosage: 1 DF, UNK
     Route: 048
  5. PARALYOC [Concomitant]
     Active Substance: ACETAMINOPHEN
     Dosage: UNK
     Route: 048
  6. TERCIAN /00759302/ [Suspect]
     Active Substance: CYAMEMAZINE
     Dosage: UNK
     Route: 048
     Dates: end: 201802
  7. CIFLOX /00697202/ [Suspect]
     Active Substance: CIPROFLOXACIN HYDROCHLORIDE
     Indication: URINARY TRACT INFECTION
     Dosage: UNK
     Route: 065
     Dates: start: 20180209
  8. TEMESTA /00273201/ [Suspect]
     Active Substance: LORAZEPAM
     Dosage: 1 DF, UNK
     Route: 048
  9. LYRICA [Suspect]
     Active Substance: PREGABALIN
     Indication: NEURALGIA
     Dosage: 1 DF, UNK
     Route: 048
     Dates: end: 201802
  10. SEROPLEX [Suspect]
     Active Substance: ESCITALOPRAM OXALATE
     Dosage: 1 DF, UNK
     Route: 048
     Dates: end: 201802
  11. TRIVASTAL /00397201/ [Suspect]
     Active Substance: PIRIBEDIL
     Dosage: 1 DF, UNK
     Route: 048
     Dates: end: 201902
  12. CORDARONE [Concomitant]
     Active Substance: AMIODARONE HYDROCHLORIDE
     Dosage: 0.5 DF, UNK (5 DAYS A WEEK)
     Route: 048
  13. FUROSEMIDE. [Concomitant]
     Active Substance: FUROSEMIDE
     Dosage: 20 MG, UNK
     Route: 048
  14. BACLOFEN. [Suspect]
     Active Substance: BACLOFEN
     Dosage: 2 DF, UNK
     Route: 065
  15. TAHOR [Concomitant]
     Active Substance: ATORVASTATIN CALCIUM
     Dosage: 1 DF, UNK
     Route: 048

REACTIONS (3)
  - Fall [Recovered/Resolved]
  - Confusional state [Recovering/Resolving]
  - Condition aggravated [Recovering/Resolving]

NARRATIVE: CASE EVENT DATE: 20180211
